FAERS Safety Report 9657577 (Version 1)
Quarter: 2013Q4

REPORT INFORMATION
  Report Type: Spontaneous
  Country: GB (occurrence: None)
  Receive Date: 20131029
  Receipt Date: 20131029
  Transmission Date: 20140711
  Serious: Yes (Hospitalization, Other)
  Sender: FDA-Public Use
  Company Number: KAD201310-001437

PATIENT
  Sex: Female

DRUGS (3)
  1. RIBAVIRIN (RIBAVIRIN) [Suspect]
     Indication: HEPATITIS C
     Route: 048
     Dates: start: 20121028, end: 20130116
  2. PEGYLATED INTERFERON NOS [Suspect]
     Indication: HEPATITIS C
     Route: 058
     Dates: start: 20121028, end: 20130116
  3. INCIVO (TELAPREVIR) [Suspect]
     Indication: HEPATITIS C

REACTIONS (2)
  - Drug reaction with eosinophilia and systemic symptoms [None]
  - Eczema [None]
